FAERS Safety Report 5862785-7 (Version None)
Quarter: 2008Q3

REPORT INFORMATION
  Report Type: 
  Country: None (occurrence: None)
  Receive Date: 20080828
  Receipt Date: 20080822
  Transmission Date: 20090109
  Serious: Yes (Life-Threatening, Hospitalization, Other)
  Sender: FDA-Public Use
  Company Number: US-AMGEN-US223452

PATIENT
  Sex: Female
  Weight: 73.5 kg

DRUGS (4)
  1. ETANERCEPT [Suspect]
     Indication: HEPATITIS ALCOHOLIC
     Route: 065
     Dates: start: 20070427, end: 20070501
  2. SPIRONOLACTONE [Concomitant]
     Route: 048
     Dates: start: 20070422
  3. VICON FORTE [Concomitant]
     Route: 048
     Dates: start: 20070422
  4. VITAMIN K TAB [Concomitant]
     Route: 048
     Dates: start: 20070422

REACTIONS (1)
  - DISSEMINATED INTRAVASCULAR COAGULATION [None]
